FAERS Safety Report 19124889 (Version 1)
Quarter: 2021Q2

REPORT INFORMATION
  Report Type: Spontaneous
  Country: CN (occurrence: CN)
  Receive Date: 20210412
  Receipt Date: 20210412
  Transmission Date: 20210717
  Serious: Yes (Life-Threatening, Hospitalization, Other)
  Sender: FDA-Public Use
  Company Number: CN-GLAXOSMITHKLINE-CN2021GSK074545

PATIENT
  Age: 11 Year
  Sex: Male

DRUGS (3)
  1. ZIDOVUDINE. [Suspect]
     Active Substance: ZIDOVUDINE
     Indication: HIV INFECTION
     Dosage: UNK
     Dates: start: 201408, end: 201802
  2. NEVIRAPIN [Suspect]
     Active Substance: NEVIRAPINE
     Indication: HIV INFECTION
     Dosage: UNK
     Dates: start: 201408, end: 201802
  3. LAMIVUDINE HIV [Suspect]
     Active Substance: LAMIVUDINE
     Indication: HIV INFECTION
     Dosage: UNK
     Dates: start: 201408

REACTIONS (14)
  - Condition aggravated [Recovered/Resolved]
  - Antiphospholipid syndrome [Recovered/Resolved]
  - Peripheral swelling [Recovered/Resolved]
  - Pain in extremity [Recovered/Resolved]
  - Dyskinesia [Recovered/Resolved]
  - Lymphangiectasia [Recovered/Resolved]
  - Varicose vein [Recovered/Resolved]
  - Blood HIV RNA increased [Unknown]
  - Drug ineffective [Unknown]
  - Tenderness [Recovered/Resolved]
  - Oedema [Recovered/Resolved]
  - HIV viraemia [Unknown]
  - Deep vein thrombosis [Recovered/Resolved]
  - Thrombosis [Recovered/Resolved]

NARRATIVE: CASE EVENT DATE: 2018
